FAERS Safety Report 5293286-5 (Version None)
Quarter: 2007Q2

REPORT INFORMATION
  Report Type: 
  Country: None (occurrence: None)
  Receive Date: 20070411
  Receipt Date: 20070330
  Transmission Date: 20071010
  Serious: Yes (Other)
  Sender: FDA-Public Use
  Company Number: US-ELI_LILLY_AND_COMPANY-US200608000112

PATIENT
  Age: 53 Year
  Sex: Female

DRUGS (4)
  1. FORTEO [Suspect]
     Indication: OSTEOPOROSIS
     Dosage: 20 UG, UNK
     Dates: start: 20031001, end: 20050401
  2. FORTEO [Suspect]
     Dates: start: 20060801
  3. ACTONEL                                 /USA/ [Concomitant]
     Dates: start: 20010101, end: 20031001
  4. ACTONEL                                 /USA/ [Concomitant]
     Dates: start: 20050401, end: 20060401

REACTIONS (2)
  - NEPHROLITHIASIS [None]
  - OSTEONECROSIS [None]
